FAERS Safety Report 9014046 (Version 2)
Quarter: 2013Q4

REPORT INFORMATION
  Report Type: Spontaneous
  Country: US (occurrence: US)
  Receive Date: 20130115
  Receipt Date: 20131204
  Transmission Date: 20140711
  Serious: Yes (Hospitalization, Other)
  Sender: FDA-Public Use
  Company Number: US-009507513-1301USA005176

PATIENT
  Sex: Female
  Weight: 92.97 kg

DRUGS (1)
  1. NUVARING [Suspect]
     Indication: CONTRACEPTION
     Dosage: UNK
     Route: 067
     Dates: start: 200902, end: 20120113

REACTIONS (6)
  - Cholecystectomy [Unknown]
  - Pulmonary embolism [Unknown]
  - Coagulopathy [Unknown]
  - Chlamydial infection [Unknown]
  - Gallbladder disorder [Unknown]
  - Fibrocystic breast disease [Unknown]
